FAERS Safety Report 9465565 (Version 3)
Quarter: 2013Q4

REPORT INFORMATION
  Report Type: Report from Study
  Country: DE (occurrence: DE)
  Receive Date: 20130820
  Receipt Date: 20131024
  Transmission Date: 20140711
  Serious: Yes (Hospitalization)
  Sender: FDA-Public Use
  Company Number: DE-ROCHE-1259633

PATIENT
  Age: 75 Year
  Sex: Male
  Weight: 78 kg

DRUGS (10)
  1. TOCILIZUMAB [Suspect]
     Indication: RHEUMATOID ARTHRITIS
     Route: 042
     Dates: start: 20121101
  2. RITUXIMAB [Suspect]
     Indication: RHEUMATOID ARTHRITIS
     Dosage: LAST DOSE PRIOR TO SAE ON 18/MAR/2013.
     Route: 042
     Dates: start: 20130228
  3. MOLSIDOMIN [Concomitant]
     Route: 065
     Dates: start: 2010
  4. FOLCUR [Concomitant]
     Route: 065
     Dates: start: 20071113
  5. PREDNISOLONE [Concomitant]
     Route: 065
     Dates: start: 20081209
  6. TAMSULOSIN [Concomitant]
     Route: 065
     Dates: start: 2005
  7. PRAVASIN [Concomitant]
     Route: 065
     Dates: start: 2003
  8. ASS [Concomitant]
     Route: 065
     Dates: start: 2004
  9. FINASTERID [Concomitant]
     Route: 065
     Dates: start: 2010
  10. METHOTREXATE [Concomitant]
     Route: 065
     Dates: start: 20111212

REACTIONS (1)
  - Sacroiliitis [Recovered/Resolved with Sequelae]
